FAERS Safety Report 22179230 (Version 3)
Quarter: 2024Q2

REPORT INFORMATION
  Report Type: Other
  Country: CA (occurrence: CA)
  Receive Date: 20230406
  Receipt Date: 20240531
  Transmission Date: 20240715
  Serious: Yes (Other)
  Sender: FDA-Public Use
  Company Number: CA-APOTEX-2023AP006285

PATIENT
  Age: 81 Year
  Sex: Female
  Weight: 37 kg

DRUGS (31)
  1. DICLOFENAC SODIUM [Suspect]
     Active Substance: DICLOFENAC\DICLOFENAC SODIUM
     Indication: Product used for unknown indication
     Dosage: 9 MILLILITER, Q.6H
     Route: 065
  2. CODEINE SULFATE [Suspect]
     Active Substance: CODEINE SULFATE
     Indication: Product used for unknown indication
     Dosage: 7.5 MILLILITER, TID
     Route: 065
  3. TEDUGLUTIDE [Suspect]
     Active Substance: TEDUGLUTIDE
     Indication: Short-bowel syndrome
     Dosage: 1 MILLIGRAM, Q.WK.
     Route: 058
  4. TEDUGLUTIDE [Suspect]
     Active Substance: TEDUGLUTIDE
     Dosage: 1 MILLIGRAM, QD
     Route: 058
  5. TEDUGLUTIDE [Suspect]
     Active Substance: TEDUGLUTIDE
     Dosage: 2 MILLIGRAM, QD
     Route: 058
  6. TEDUGLUTIDE [Suspect]
     Active Substance: TEDUGLUTIDE
     Dosage: 0.5 MILLIGRAM, QD
     Route: 058
  7. TEDUGLUTIDE [Suspect]
     Active Substance: TEDUGLUTIDE
     Dosage: 0.5 MILLIGRAM, QD
     Route: 050
  8. ACETAMINOPHEN [Concomitant]
     Active Substance: ACETAMINOPHEN
     Indication: Premenstrual syndrome
     Dosage: 15 MILLILITER
     Route: 048
  9. CARBOHYDRATES NOS;MINERALS NOS;PROTEINS NOS;VITAMINS NOS [Concomitant]
     Indication: Product used for unknown indication
     Dosage: 1200 MILLILITER, QD
     Route: 042
  10. CITALOPRAM HYDROBROMIDE [Concomitant]
     Active Substance: CITALOPRAM HYDROBROMIDE
     Indication: Premenstrual syndrome
     Dosage: 60 MILLIGRAM, QD
     Route: 065
  11. CODEINE PHOSPHATE [Concomitant]
     Active Substance: CODEINE PHOSPHATE
     Indication: Product used for unknown indication
     Dosage: 4 MILLILITER, QD
     Route: 065
  12. CODEINE PHOSPHATE [Concomitant]
     Active Substance: CODEINE PHOSPHATE
     Dosage: 12 MILLILITER, TID
     Route: 065
  13. CODEINE PHOSPHATE [Concomitant]
     Active Substance: CODEINE PHOSPHATE
     Dosage: 7.5 MILLILITER, TID
     Route: 065
  14. CODEINE PHOSPHATE [Concomitant]
     Active Substance: CODEINE PHOSPHATE
     Dosage: UNK
     Route: 065
  15. CODEINE PHOSPHATE [Concomitant]
     Active Substance: CODEINE PHOSPHATE
     Dosage: 60 MILLIGRAM
     Route: 048
  16. ASPIRIN [Concomitant]
     Active Substance: ASPIRIN
     Indication: Product used for unknown indication
     Dosage: 81 MILLIGRAM, QD
     Route: 065
  17. MINT FUROSEMIDE [Concomitant]
     Indication: Oedema
     Dosage: 40 MILLIGRAM, BID
     Route: 065
  18. GRAVOL [Concomitant]
     Active Substance: DIMENHYDRINATE
     Indication: Product used for unknown indication
     Dosage: UNK
     Route: 065
  19. HYALURONATE SODIUM [Concomitant]
     Active Substance: HYALURONATE SODIUM
     Indication: Product used for unknown indication
     Dosage: UNK
     Route: 047
  20. JUBLIA [Concomitant]
     Active Substance: EFINACONAZOLE
     Indication: Product used for unknown indication
     Dosage: UNK, QD
     Route: 061
  21. MORPHINE HYDROCHLORIDE [Concomitant]
     Active Substance: MORPHINE HYDROCHLORIDE
     Indication: Product used for unknown indication
     Dosage: UNK
     Route: 065
  22. CHILDRENS TYLENOL [Concomitant]
     Active Substance: ACETAMINOPHEN
     Indication: Stoma site pain
     Dosage: 15 MILLILITER
     Route: 065
  23. CHILDRENS TYLENOL [Concomitant]
     Active Substance: ACETAMINOPHEN
     Indication: Pain
     Dosage: UNK
     Route: 065
  24. USANA DIGESTIVE ENZYME [Concomitant]
     Indication: Probiotic therapy
     Dosage: 9 MILLILITER, Q.6H
     Route: 048
  25. VITAMINS NOS [Concomitant]
     Active Substance: VITAMINS
     Indication: Product used for unknown indication
     Dosage: 9 MILLILITER, Q.6H
     Route: 048
  26. CALCIUM CITRATE;CHROMIC CHLORIDE;CHROMIUM PICOLINATE;COPPER GLUCONATE; [Concomitant]
     Indication: Supplementation therapy
     Dosage: UNK, QD
     Route: 048
  27. CALCIUM [Concomitant]
     Active Substance: CALCIUM
     Indication: Product used for unknown indication
     Dosage: UNK
     Route: 065
  28. MAGNESIUM [Concomitant]
     Active Substance: MAGNESIUM
     Indication: Product used for unknown indication
     Dosage: UNK, QD
     Route: 065
  29. VITAMIN D NOS [Concomitant]
     Active Substance: CHOLECALCIFEROL\ERGOCALCIFEROL
     Indication: Product used for unknown indication
     Dosage: UNK, QD
     Route: 065
  30. EFINACONAZOLE [Concomitant]
     Active Substance: EFINACONAZOLE
     Indication: Product used for unknown indication
     Dosage: UNK
     Route: 065
  31. OLANZAPINE [Concomitant]
     Active Substance: OLANZAPINE
     Indication: Product used for unknown indication
     Dosage: 5 MILLIGRAM
     Route: 065

REACTIONS (71)
  - Abdominal distension [Not Recovered/Not Resolved]
  - Apathy [Not Recovered/Not Resolved]
  - Balance disorder [Not Recovered/Not Resolved]
  - Body temperature increased [Not Recovered/Not Resolved]
  - Compression fracture [Not Recovered/Not Resolved]
  - Defaecation urgency [Not Recovered/Not Resolved]
  - Depressed level of consciousness [Not Recovered/Not Resolved]
  - Eructation [Not Recovered/Not Resolved]
  - Faeces hard [Not Recovered/Not Resolved]
  - Fall [Not Recovered/Not Resolved]
  - Feeding disorder [Not Recovered/Not Resolved]
  - Feeling abnormal [Not Recovered/Not Resolved]
  - Frequent bowel movements [Not Recovered/Not Resolved]
  - Gastrointestinal stoma complication [Not Recovered/Not Resolved]
  - Gastrointestinal stoma output abnormal [Not Recovered/Not Resolved]
  - Hiccups [Not Recovered/Not Resolved]
  - Hot flush [Not Recovered/Not Resolved]
  - Hypersomnia [Not Recovered/Not Resolved]
  - Joint swelling [Not Recovered/Not Resolved]
  - Lumbar vertebral fracture [Not Recovered/Not Resolved]
  - Mobility decreased [Not Recovered/Not Resolved]
  - Wrong technique in product usage process [Not Recovered/Not Resolved]
  - Incorrect dose administered [Not Recovered/Not Resolved]
  - Mood swings [Not Recovered/Not Resolved]
  - Obstructive defaecation [Not Recovered/Not Resolved]
  - Peripheral swelling [Not Recovered/Not Resolved]
  - Sepsis [Not Recovered/Not Resolved]
  - Stoma site dermatitis [Not Recovered/Not Resolved]
  - Stoma site inflammation [Not Recovered/Not Resolved]
  - Stoma site pain [Not Recovered/Not Resolved]
  - Stress [Not Recovered/Not Resolved]
  - Medication error [Not Recovered/Not Resolved]
  - Spinal fracture [Not Recovered/Not Resolved]
  - Product dose omission issue [Not Recovered/Not Resolved]
  - Vestibular neuronitis [Not Recovered/Not Resolved]
  - Brain fog [Not Recovered/Not Resolved]
  - Vertigo positional [Not Recovered/Not Resolved]
  - Oedema peripheral [Not Recovered/Not Resolved]
  - Syncope [Not Recovered/Not Resolved]
  - Underweight [Not Recovered/Not Resolved]
  - Device leakage [Not Recovered/Not Resolved]
  - Weight decreased [Not Recovered/Not Resolved]
  - Neuritis [Not Recovered/Not Resolved]
  - Hypoglycaemia [Not Recovered/Not Resolved]
  - Night sweats [Not Recovered/Not Resolved]
  - Cough [Not Recovered/Not Resolved]
  - Spinal compression fracture [Not Recovered/Not Resolved]
  - Contusion [Not Recovered/Not Resolved]
  - Pain [Not Recovered/Not Resolved]
  - Asthenia [Not Recovered/Not Resolved]
  - Lethargy [Not Recovered/Not Resolved]
  - Back pain [Not Recovered/Not Resolved]
  - Nightmare [Not Recovered/Not Resolved]
  - Anxiety [Not Recovered/Not Resolved]
  - Fatigue [Not Recovered/Not Resolved]
  - Malaise [Not Recovered/Not Resolved]
  - Intestinal obstruction [Not Recovered/Not Resolved]
  - Insomnia [Not Recovered/Not Resolved]
  - Vomiting [Not Recovered/Not Resolved]
  - Diarrhoea [Not Recovered/Not Resolved]
  - Abdominal discomfort [Not Recovered/Not Resolved]
  - Nausea [Not Recovered/Not Resolved]
  - Headache [Not Recovered/Not Resolved]
  - Depression [Not Recovered/Not Resolved]
  - Decreased appetite [Not Recovered/Not Resolved]
  - Abdominal pain upper [Not Recovered/Not Resolved]
  - Muscle spasms [Not Recovered/Not Resolved]
  - Oedema [Not Recovered/Not Resolved]
  - Flatulence [Not Recovered/Not Resolved]
  - Vision blurred [Not Recovered/Not Resolved]
  - Rash [Not Recovered/Not Resolved]
